FAERS Safety Report 7409258-8 (Version None)
Quarter: 2011Q2

REPORT INFORMATION
  Report Type: 
  Country: None (occurrence: None)
  Receive Date: 20110412
  Receipt Date: 20110407
  Transmission Date: 20111010
  Serious: Yes (Hospitalization, Congenital Anomaly)
  Sender: FDA-Public Use
  Company Number: A0915152A

PATIENT
  Sex: Female

DRUGS (1)
  1. PAROXETINE [Suspect]
     Dosage: 10MG PER DAY
     Route: 064
     Dates: start: 20031013

REACTIONS (3)
  - CLEFT PALATE [None]
  - CONGENITAL ANOMALY [None]
  - DRUG EXPOSURE DURING PREGNANCY [None]
